FAERS Safety Report 4954441-4 (Version None)
Quarter: 2006Q1

REPORT INFORMATION
  Report Type: 
  Country: None (occurrence: None)
  Receive Date: 20060322
  Receipt Date: 20060307
  Transmission Date: 20060701
  Serious: Yes (Other)
  Sender: FDA-Public Use
  Company Number: 2006-DE-01264GD

PATIENT
  Sex: Female

DRUGS (5)
  1. HYDROCHLOROTHIAZIDE [Suspect]
     Dosage: IU
     Route: 015
  2. LABETALOL HCL [Suspect]
     Dosage: IU
     Route: 015
  3. AMILORIDE (AMILORIDE) [Suspect]
     Dosage: IU
     Route: 015
  4. PRAZOSIN GITS [Suspect]
     Dosage: IU
     Route: 015
  5. ENALAPRIL MALEATE [Suspect]
     Dosage: IU, 10 MG

REACTIONS (14)
  - BLOOD PRESSURE DECREASED [None]
  - CYSTITIS [None]
  - DRUG EXPOSURE DURING PREGNANCY [None]
  - FOETAL HEART RATE ABNORMAL [None]
  - GLOMERULAR FILTRATION RATE DECREASED [None]
  - HYPOSTHENURIA [None]
  - METABOLIC ACIDOSIS [None]
  - OLIGOHYDRAMNIOS [None]
  - PREMATURE BABY [None]
  - PROTEINURIA [None]
  - RENAL FAILURE NEONATAL [None]
  - RENAL TUBULAR ACIDOSIS [None]
  - RENAL TUBULAR DISORDER [None]
  - ULTRASOUND KIDNEY ABNORMAL [None]
